FAERS Safety Report 7008172-X (Version None)
Quarter: 2010Q3

REPORT INFORMATION
  Report Type: 
  Country: None (occurrence: None)
  Receive Date: 20100922
  Receipt Date: 20100917
  Transmission Date: 20110219
  Serious: Yes (Death, Hospitalization)
  Sender: FDA-Public Use
  Company Number: GB-ELI_LILLY_AND_COMPANY-GB201007007715

PATIENT
  Sex: Male
  Weight: 54.5 kg

DRUGS (35)
  1. NECITUMUMAB (11F8) (LY3012211) [Suspect]
     Dosage: 800 MG, 2 IN 3 WEEKS
     Route: 042
     Dates: start: 20100701
  2. NECITUMUMAB (11F8) (LY3012211) [Suspect]
     Dosage: 800 MG, 2 IN 3 WEEKS
     Route: 042
     Dates: start: 20100722, end: 20100722
  3. PEMETREXED [Suspect]
     Dosage: 425 MG, 1 IN 3 WEEKS
     Route: 042
     Dates: start: 20100701
  4. PEMETREXED [Suspect]
     Dosage: 425 MG, 1 IN 3 WEEKS
     Route: 042
     Dates: start: 20100722, end: 20100722
  5. CISPLATIN [Suspect]
     Dosage: 94 MG, 1 IN 3 WEEKS
     Route: 042
     Dates: start: 20100701
  6. CISPLATIN [Suspect]
     Dosage: 94 MG, 1 IN 3 WEEKS
     Route: 042
     Dates: start: 20100722, end: 20100722
  7. DEXAMETHASONE [Concomitant]
     Indication: NAUSEA
     Dosage: UNK, UNK
     Dates: start: 20100603
  8. ACETAMINOPHEN [Concomitant]
     Indication: PAIN
     Dates: start: 20100514
  9. ACETAMINOPHEN [Concomitant]
     Dosage: 1 G, DAILY (1/D)
     Dates: start: 20100725, end: 20100726
  10. ATROVENT [Concomitant]
     Indication: CHRONIC OBSTRUCTIVE PULMONARY DISEASE
     Dates: start: 20100520
  11. BRICANYL [Concomitant]
     Indication: CHRONIC OBSTRUCTIVE PULMONARY DISEASE
     Dates: start: 20100406
  12. NAPROXEN [Concomitant]
     Indication: PAIN
     Dates: start: 20100608
  13. LANSOPRAZOLE [Concomitant]
     Dates: start: 20100608
  14. CO-DYDRAMOL [Concomitant]
     Indication: PAIN
     Dates: start: 20100608
  15. ENSURE /06184901/ [Concomitant]
     Indication: MEDICAL DIET
     Dates: start: 20100708
  16. LACTULOSE [Concomitant]
     Indication: CONSTIPATION
     Dates: start: 20100501
  17. SENNA [Concomitant]
     Indication: CONSTIPATION
     Dates: start: 20100501
  18. ZOPICLONE [Concomitant]
     Indication: SEDATION
     Dates: start: 20100519
  19. OXETACAINE [Concomitant]
     Indication: MUCOSAL INFLAMMATION
     Dates: start: 20100710
  20. CO-DANTHRAMER [Concomitant]
     Indication: CONSTIPATION
     Dates: start: 20100710, end: 20100711
  21. FLUCONAZOLE [Concomitant]
     Indication: MOUTH ULCERATION
     Dates: start: 20100712, end: 20100718
  22. CARBOCISTEINE [Concomitant]
     Indication: PRODUCTIVE COUGH
     Dates: start: 20100715
  23. DIFFLAM [Concomitant]
     Indication: MOUTH ULCERATION
     Dates: start: 20100708
  24. CIPROFLOXACIN [Concomitant]
     Indication: MUCOSAL INFLAMMATION
     Dates: start: 20100709, end: 20100714
  25. GLYCERIN [Concomitant]
     Indication: CONSTIPATION
     Dates: start: 20100711, end: 20100711
  26. SALINE [Concomitant]
     Indication: CHRONIC OBSTRUCTIVE PULMONARY DISEASE
     Dosage: 5 ML, VIA NEBULISER
     Dates: start: 20100712
  27. ORAMORPH SR [Concomitant]
     Indication: PAIN
     Dates: start: 20100708
  28. DIHYDROCODEINE [Concomitant]
     Indication: PAIN
     Dates: start: 20100708
  29. VITAMIN TAB [Concomitant]
     Indication: MEDICAL DIET
     Dates: start: 20100714
  30. FOLIC ACID [Concomitant]
  31. VITAMIN B-12 [Concomitant]
  32. OMEPRAZOLE [Concomitant]
     Dosage: 40 MG, DAILY (1/D)
     Route: 042
     Dates: start: 20100725, end: 20100726
  33. CLEXANE [Concomitant]
     Dosage: 20 MG, DAILY (1/D)
     Dates: start: 20100725, end: 20100726
  34. MORPHINE [Concomitant]
     Dosage: 20 MG, UNK
     Dates: start: 20100726, end: 20100726
  35. HYOSCINE [Concomitant]
     Dosage: 0.4 MG, UNK
     Dates: start: 20100726, end: 20100726

REACTIONS (1)
  - INTESTINAL PERFORATION [None]
